FAERS Safety Report 16555290 (Version 3)
Quarter: 2019Q4

REPORT INFORMATION
  Report Type: Spontaneous
  Country: DE (occurrence: DE)
  Receive Date: 20190710
  Receipt Date: 20191219
  Transmission Date: 20200122
  Serious: Yes (Life-Threatening, Other)
  Sender: FDA-Public Use
  Company Number: PHHY2019DE156563

PATIENT
  Sex: Female

DRUGS (1)
  1. GILENYA [Suspect]
     Active Substance: FINGOLIMOD HYDROCHLORIDE
     Indication: MULTIPLE SCLEROSIS
     Dosage: 0.5 MG, UNK
     Route: 065

REACTIONS (5)
  - JC polyomavirus test positive [Recovering/Resolving]
  - Non-small cell lung cancer [Recovering/Resolving]
  - Metastases to central nervous system [Recovering/Resolving]
  - Lung adenocarcinoma [Recovering/Resolving]
  - Gliosis [Unknown]
